FAERS Safety Report 6992576-5 (Version None)
Quarter: 2010Q3

REPORT INFORMATION
  Report Type: 
  Country: None (occurrence: None)
  Receive Date: 20100917
  Receipt Date: 20100826
  Transmission Date: 20110219
  Serious: No
  Sender: FDA-Public Use
  Company Number: JP-ROCHE-673291

PATIENT
  Sex: Female

DRUGS (1)
  1. TAMIFLU [Suspect]
     Indication: PRODUCT USED FOR UNKNOWN INDICATION
     Route: 048
     Dates: start: 20091126

REACTIONS (3)
  - ACCIDENTAL OVERDOSE [None]
  - CHEST DISCOMFORT [None]
  - HEADACHE [None]
